FAERS Safety Report 9638354 (Version 2)
Quarter: 2013Q4

REPORT INFORMATION
  Report Type: Spontaneous
  Country: JP (occurrence: JP)
  Receive Date: 20131022
  Receipt Date: 20131217
  Transmission Date: 20140711
  Serious: Yes (Other)
  Sender: FDA-Public Use
  Company Number: JP-GLAXOSMITHKLINE-B0927338A

PATIENT
  Age: 78 Year
  Sex: Female

DRUGS (10)
  1. LAMICTAL [Suspect]
     Indication: BIPOLAR DISORDER
     Dosage: 25MG PER DAY
     Route: 048
     Dates: start: 20130910, end: 20130924
  2. LAMICTAL [Suspect]
     Indication: BIPOLAR DISORDER
     Dosage: 50MG TWICE PER DAY
     Route: 048
     Dates: start: 20130925, end: 20130925
  3. CALONAL [Concomitant]
     Indication: PYREXIA
     Dosage: 200MG THREE TIMES PER DAY
     Route: 048
     Dates: start: 20130923, end: 20130924
  4. CALONAL [Concomitant]
     Indication: PYREXIA
     Route: 048
     Dates: start: 20130925, end: 20130926
  5. FLUNITRAZEPAM [Concomitant]
     Indication: INSOMNIA
     Dosage: 1MG PER DAY
     Route: 048
     Dates: start: 20130812, end: 20130926
  6. IVERMECTIN [Concomitant]
     Indication: ACARODERMATITIS
     Dosage: 12MG PER DAY
     Route: 048
     Dates: start: 20130828, end: 20130828
  7. IVERMECTIN [Concomitant]
     Indication: ACARODERMATITIS
     Dosage: 12MG PER DAY
     Route: 048
     Dates: start: 20130904, end: 20130904
  8. LORATADINE [Concomitant]
     Indication: PRURITUS
     Dosage: 10MG PER DAY
     Route: 048
     Dates: start: 20130903, end: 20130916
  9. LORATADINE [Concomitant]
     Indication: PRURITUS
     Dosage: 10MG PER DAY
     Route: 048
     Dates: start: 20130924, end: 20130925
  10. SENNOSIDE [Concomitant]
     Indication: CONSTIPATION
     Dosage: 12MG PER DAY
     Route: 048
     Dates: start: 20130918, end: 20130926

REACTIONS (5)
  - Stevens-Johnson syndrome [Recovered/Resolved]
  - Eye disorder [Unknown]
  - Oral disorder [Unknown]
  - Pyrexia [Unknown]
  - Asthenia [Unknown]
